FAERS Safety Report 18664862 (Version 1)
Quarter: 2020Q4

REPORT INFORMATION
  Report Type: Spontaneous
  Country: US (occurrence: US)
  Receive Date: 20201225
  Receipt Date: 20201225
  Transmission Date: 20210114
  Serious: Yes (Hospitalization, Other)
  Sender: FDA-Public Use
  Company Number: US-ASTRAZENECA-2020SF70758

PATIENT
  Age: 699 Month
  Sex: Male
  Weight: 91.2 kg

DRUGS (10)
  1. FARXIGA [Suspect]
     Active Substance: DAPAGLIFLOZIN PROPANEDIOL
     Indication: DIABETES MELLITUS
     Route: 048
     Dates: start: 2020
  2. LORAZAPAM [Concomitant]
     Active Substance: LORAZEPAM
     Dosage: 0.5
  3. OMEPRAZOLE. [Suspect]
     Active Substance: OMEPRAZOLE
     Route: 048
  4. HUMALOG [Concomitant]
     Active Substance: INSULIN LISPRO
  5. TAMSULOSIN [Concomitant]
     Active Substance: TAMSULOSIN
     Dosage: 0.4
  6. TIME RELEASED AMBIEN [Concomitant]
     Dosage: 12.5
  7. HYDROCHLORTHIAZIDE [Concomitant]
     Active Substance: HYDROCHLOROTHIAZIDE
  8. BUPROPION. [Concomitant]
     Active Substance: BUPROPION
     Dosage: 150
  9. LISINOPRIL. [Concomitant]
     Active Substance: LISINOPRIL
  10. CITALOPRAM [Concomitant]
     Active Substance: CITALOPRAM HYDROBROMIDE
     Indication: DEPRESSION
     Dosage: 40

REACTIONS (5)
  - COVID-19 [Unknown]
  - Pancreatitis [Unknown]
  - Heat exhaustion [Unknown]
  - Blood glucose increased [Unknown]
  - Syncope [Unknown]

NARRATIVE: CASE EVENT DATE: 202006
